FAERS Safety Report 17505992 (Version 1)
Quarter: 2020Q1

REPORT INFORMATION
  Report Type: Spontaneous
  Country: GB (occurrence: GB)
  Receive Date: 20200306
  Receipt Date: 20200306
  Transmission Date: 20200409
  Serious: Yes (Other)
  Sender: FDA-Public Use
  Company Number: GB-TEVA-2020-GB-1195047

PATIENT
  Age: 71 Year
  Sex: Female
  Weight: 64 kg

DRUGS (9)
  1. OMEPRAZOLE. [Concomitant]
     Active Substance: OMEPRAZOLE
     Dosage: 1 DF
     Dates: start: 20190214
  2. ZAPAIN [Concomitant]
     Active Substance: ACETAMINOPHEN\CODEINE PHOSPHATE
     Dosage: TAKE TWO IN THE MORNING AND TWO AT NIGHT AS REQUIRED ,  4 DF
     Dates: start: 20190912
  3. LOSARTAN. [Concomitant]
     Active Substance: LOSARTAN
     Dosage: 1 DF
     Dates: start: 20190214
  4. NOVORAPID [Concomitant]
     Active Substance: INSULIN ASPART
     Dosage: USE AS DIRECTED
     Dates: start: 20190312
  5. SIMVASTATIN. [Concomitant]
     Active Substance: SIMVASTATIN
     Dosage: TAKE AT NIGHT, 2 DF
     Dates: start: 20190214
  6. DOXYCYCLINE. [Suspect]
     Active Substance: DOXYCYCLINE
     Dosage: TWO NOW THEN ONE DAILY, 100 MG
     Dates: start: 20200213
  7. LANTUS [Concomitant]
     Active Substance: INSULIN GLARGINE
     Dosage: USE AS DIRECTED
     Dates: start: 20190312
  8. ALENDRONIC ACID [Concomitant]
     Active Substance: ALENDRONIC ACID
     Dosage: 1 DF
     Dates: start: 20190214
  9. ADCAL [Concomitant]
     Dosage: 2 DF
     Dates: start: 20180424

REACTIONS (2)
  - Muscular weakness [Recovered/Resolved]
  - Condition aggravated [Unknown]
